APPROVED DRUG PRODUCT: HALOPERIDOL
Active Ingredient: HALOPERIDOL
Strength: 5MG
Dosage Form/Route: TABLET;ORAL
Application: A211061 | Product #004 | TE Code: AB
Applicant: APPCO PHARMA LLC
Approved: Jan 8, 2020 | RLD: No | RS: No | Type: RX